FAERS Safety Report 7233586-2 (Version None)
Quarter: 2011Q1

REPORT INFORMATION
  Report Type: 
  Country: None (occurrence: None)
  Receive Date: 20110119
  Receipt Date: 20100112
  Transmission Date: 20110831
  Serious: No
  Sender: FDA-Public Use
  Company Number: US-PFIZER INC-2010005644

PATIENT
  Sex: Female
  Weight: 68 kg

DRUGS (6)
  1. MAXAIR [Concomitant]
     Indication: ASTHMA
     Dosage: FREQUENCY: AS NEEDED,
  2. AROMASIN [Suspect]
     Indication: BREAST CANCER
     Dosage: 25 MG, 1X/DAY
     Dates: start: 20070101
  3. LOVAZA [Concomitant]
     Dosage: UNK
  4. ADVAIR [Concomitant]
     Indication: ASTHMA
     Dosage: FREQUENCY: AS NEEDED,
  5. VITAMIN D [Concomitant]
     Dosage: UNK
  6. CALCIUM [Concomitant]
     Dosage: UNK

REACTIONS (3)
  - ALOPECIA [None]
  - ASTHENIA [None]
  - HAIR TEXTURE ABNORMAL [None]
